FAERS Safety Report 19745982 (Version 1)
Quarter: 2021Q3

REPORT INFORMATION
  Report Type: Spontaneous
  Country: CN (occurrence: CN)
  Receive Date: 20210825
  Receipt Date: 20210825
  Transmission Date: 20211014
  Serious: Yes (Hospitalization)
  Sender: FDA-Public Use
  Company Number: CN-JUBILANT CADISTA PHARMACEUTICALS-2021JUB00251

PATIENT
  Age: 76 Year
  Sex: Male

DRUGS (3)
  1. CARBAMAZEPINE. [Suspect]
     Active Substance: CARBAMAZEPINE
     Indication: POST HERPETIC NEURALGIA
     Dosage: 0.2 G, 2X/DAY
     Route: 065
     Dates: start: 202102, end: 2021
  2. PREGABALIN. [Concomitant]
     Active Substance: PREGABALIN
     Indication: POST HERPETIC NEURALGIA
     Dosage: 150 MG, 2X/DAY
     Route: 065
     Dates: start: 202102
  3. CLONAZEPAM. [Concomitant]
     Active Substance: CLONAZEPAM
     Indication: POST HERPETIC NEURALGIA
     Dosage: 1 MG, 1X/DAY
     Route: 065
     Dates: start: 202102

REACTIONS (1)
  - Immune thrombocytopenia [Recovered/Resolved]

NARRATIVE: CASE EVENT DATE: 2021
